FAERS Safety Report 5409508-3 (Version None)
Quarter: 2007Q3

REPORT INFORMATION
  Report Type: 
  Country: None (occurrence: None)
  Receive Date: 20070807
  Receipt Date: 20070807
  Transmission Date: 20080115
  Serious: Yes (Hospitalization)
  Sender: FDA-Public Use
  Company Number: None

PATIENT
  Age: 34 Year
  Sex: Female

DRUGS (1)
  1. LEXAPRO [Suspect]
     Indication: PANIC REACTION
     Dosage: 20 MG DAILY PO
     Route: 048

REACTIONS (3)
  - DIARRHOEA [None]
  - DRUG WITHDRAWAL SYNDROME [None]
  - ORAL INTAKE REDUCED [None]
